FAERS Safety Report 23363965 (Version 1)
Quarter: 2024Q1

REPORT INFORMATION
  Report Type: Spontaneous
  Country: US (occurrence: US)
  Receive Date: 20240104
  Receipt Date: 20240104
  Transmission Date: 20240410
  Serious: No
  Sender: FDA-Public Use
  Company Number: US-APOTEX-2023AP009940

PATIENT
  Sex: Male

DRUGS (1)
  1. ICOSAPENT ETHYL [Suspect]
     Active Substance: ICOSAPENT ETHYL
     Indication: Product used for unknown indication
     Dosage: 2 DOSAGE FORM, BID
     Route: 065
     Dates: start: 2023

REACTIONS (7)
  - Eructation [Unknown]
  - Product after taste [Unknown]
  - Product colour issue [Unknown]
  - Product contamination physical [Unknown]
  - Product substitution issue [Unknown]
  - Poor quality product administered [Unknown]
  - Drug ineffective [Unknown]

NARRATIVE: CASE EVENT DATE: 20230101
